FAERS Safety Report 8032404-2 (Version None)
Quarter: 2011Q4

REPORT INFORMATION
  Report Type: 
  Country: None (occurrence: None)
  Receive Date: 20111202
  Receipt Date: 20111102
  Transmission Date: 20120403
  Serious: No
  Sender: FDA-Public Use
  Company Number: PHEH2011US08410

PATIENT
  Sex: Male

DRUGS (2)
  1. FANAPT [Suspect]
     Dosage: 6 MG, BID
  2. LAMICTAL [Concomitant]

REACTIONS (10)
  - MALE SEXUAL DYSFUNCTION [None]
  - DRY MOUTH [None]
  - WEIGHT INCREASED [None]
  - DIZZINESS [None]
  - PALPITATIONS [None]
  - FATIGUE [None]
  - SOMNOLENCE [None]
  - NASAL CONGESTION [None]
  - HEART RATE INCREASED [None]
  - EJACULATION DISORDER [None]
